FAERS Safety Report 9400033 (Version 3)
Quarter: 2013Q4

REPORT INFORMATION
  Report Type: Spontaneous
  Country: US (occurrence: US)
  Receive Date: 20130715
  Receipt Date: 20131213
  Transmission Date: 20140711
  Serious: Yes (Other)
  Sender: FDA-Public Use
  Company Number: US-PFIZER INC-2013202755

PATIENT
  Age: 72 Year
  Sex: Male

DRUGS (2)
  1. INLYTA [Suspect]
     Indication: RENAL CANCER METASTATIC
     Dosage: 3 MG, 2X/DAY
     Dates: start: 20130130
  2. INLYTA [Suspect]
     Dosage: 3 MG, 2X/DAY
     Dates: start: 20130606

REACTIONS (2)
  - Blindness transient [Unknown]
  - Hernia [Unknown]
